FAERS Safety Report 7535234-0 (Version None)
Quarter: 2011Q2

REPORT INFORMATION
  Report Type: 
  Country: None (occurrence: None)
  Receive Date: 20110609
  Receipt Date: 20071203
  Transmission Date: 20111010
  Serious: Yes (Disabling, Other)
  Sender: FDA-Public Use
  Company Number: PHFR2007GB03428

PATIENT
  Sex: Male

DRUGS (6)
  1. CLOZAPINE [Suspect]
     Dosage: 300MG/DAY
     Route: 048
  2. VALPROIC ACID [Suspect]
     Indication: CONVULSION
     Dosage: 300 MG, DAILY
     Route: 048
     Dates: start: 20071005
  3. INDORAMIN [Concomitant]
     Indication: BENIGN PROSTATIC HYPERPLASIA
     Dosage: 20MG/DAY
     Route: 048
  4. LITHIUM CARBONATE [Concomitant]
     Indication: AFFECTIVE DISORDER
     Dosage: 600MG/DAY
     Route: 048
  5. CLOZAPINE [Suspect]
     Indication: SCHIZOPHRENIA
     Dosage: 600MG/DAY
     Route: 048
     Dates: start: 19961017
  6. CLOZAPINE [Suspect]
     Dosage: 100MG, BID
     Route: 048

REACTIONS (8)
  - BRAIN SCAN ABNORMAL [None]
  - CONVULSION [None]
  - NERVOUS SYSTEM DISORDER [None]
  - SOMNOLENCE [None]
  - CATARACT [None]
  - VITAMIN B12 DEFICIENCY [None]
  - OSTEOARTHRITIS [None]
  - SEDATION [None]
